FAERS Safety Report 8251744-5 (Version None)
Quarter: 2012Q2

REPORT INFORMATION
  Report Type: 
  Country: None (occurrence: None)
  Receive Date: 20120402
  Receipt Date: 20120320
  Transmission Date: 20120825
  Serious: Yes (Death)
  Sender: FDA-Public Use
  Company Number: US-MYLANLABS-2010S1005336

PATIENT
  Age: 69 Year
  Sex: Male
  Weight: 104.78 kg

DRUGS (13)
  1. MICONAZOLE NITRATE [Concomitant]
     Route: 061
  2. ENSURE PLUS [Concomitant]
  3. FLUOXETINE [Suspect]
     Indication: DEPRESSION
  4. DIPHENHYDRAMINE HCL [Concomitant]
  5. NEXIUM [Concomitant]
  6. PROAIR HFA [Concomitant]
     Dosage: 4 PUFFS DAILY
  7. FENTANYL-100 [Suspect]
     Indication: PAIN
     Dosage: Q72H
     Route: 062
     Dates: start: 20090331
  8. LEVAQUIN [Concomitant]
  9. GLUCOPHAGE [Concomitant]
  10. ATENOLOL [Concomitant]
  11. DIFLUCAN [Concomitant]
     Indication: TINEA CRURIS
     Dosage: FOR SEVEN DAYS
  12. LOVENOX [Concomitant]
     Route: 058
  13. PERCOCET [Concomitant]
     Indication: PAIN

REACTIONS (1)
  - TOXICITY TO VARIOUS AGENTS [None]
